FAERS Safety Report 19609172 (Version 1)
Quarter: 2021Q3

REPORT INFORMATION
  Report Type: Spontaneous
  Country: US (occurrence: US)
  Receive Date: 20210726
  Receipt Date: 20210726
  Transmission Date: 20211014
  Serious: No
  Sender: FDA-Public Use
  Company Number: US-TEVA-2021-US-1935069

PATIENT
  Age: 79 Year
  Sex: Female
  Weight: 57.6 kg

DRUGS (10)
  1. VITAMIN B [Concomitant]
     Active Substance: VITAMIN B
  2. VITAMIN C [Concomitant]
     Active Substance: ASCORBIC ACID
  3. ADIPEX?P [Suspect]
     Active Substance: PHENTERMINE HYDROCHLORIDE
     Indication: DEPRESSION
     Dosage: 37.5 MILLIGRAM DAILY; EVERY DAY
     Route: 065
  4. ADIPEX?P [Suspect]
     Active Substance: PHENTERMINE HYDROCHLORIDE
     Indication: WEIGHT ABNORMAL
     Dosage: EVERY OTHER DAY
     Route: 065
  5. IRON [Concomitant]
     Active Substance: IRON
  6. ADIPEX?P [Suspect]
     Active Substance: PHENTERMINE HYDROCHLORIDE
     Indication: SLUGGISHNESS
  7. PREMARIN [Concomitant]
     Active Substance: ESTROGENS, CONJUGATED
     Route: 065
  8. SIMVASTATIN. [Concomitant]
     Active Substance: SIMVASTATIN
     Indication: BLOOD CHOLESTEROL ABNORMAL
     Route: 065
  9. VITAMIN D [Concomitant]
     Active Substance: VITAMIN D NOS
     Route: 065
  10. TYLENOL [Concomitant]
     Active Substance: ACETAMINOPHEN
     Indication: PAIN

REACTIONS (6)
  - Inappropriate schedule of product administration [Unknown]
  - Off label use [Unknown]
  - Therapeutic product effect decreased [Unknown]
  - Therapeutic response shortened [Unknown]
  - Product use issue [Unknown]
  - Product colour issue [Unknown]
